FAERS Safety Report 25100481 (Version 1)
Quarter: 2025Q1

REPORT INFORMATION
  Report Type: Spontaneous
  Country: US (occurrence: None)
  Receive Date: 20250320
  Receipt Date: 20250320
  Transmission Date: 20250408
  Serious: Yes (Other)
  Sender: FDA-CTU
  Company Number: None

PATIENT
  Age: 38 Year
  Sex: Female
  Weight: 85.5 kg

DRUGS (10)
  1. CAPLYTA [Suspect]
     Active Substance: LUMATEPERONE
     Indication: Bipolar disorder
     Dosage: 1 CAPSULE ATBEDTIME ORAL
     Route: 048
  2. BACLOFEN [Concomitant]
     Active Substance: BACLOFEN
  3. QULIPTA [Concomitant]
     Active Substance: ATOGEPANT
  4. GABAPENTIN [Concomitant]
     Active Substance: GABAPENTIN
  5. BENTYL [Concomitant]
     Active Substance: DICYCLOMINE HYDROCHLORIDE
  6. Lamitcal [Concomitant]
  7. vistril [Concomitant]
  8. ZINC [Concomitant]
     Active Substance: ZINC
  9. VITAMIN D [Concomitant]
     Active Substance: VITAMIN D NOS
  10. multivitami [Concomitant]

REACTIONS (12)
  - Anxiety [None]
  - Nausea [None]
  - Vomiting [None]
  - Panic reaction [None]
  - Irritability [None]
  - Depression [None]
  - Hypoaesthesia [None]
  - Paraesthesia [None]
  - Loss of consciousness [None]
  - Chest pain [None]
  - Heart rate increased [None]
  - Anger [None]

NARRATIVE: CASE EVENT DATE: 20250105
